FAERS Safety Report 6897043-5 (Version None)
Quarter: 2010Q3

REPORT INFORMATION
  Report Type: 
  Country: None (occurrence: None)
  Receive Date: 20100802
  Receipt Date: 20070412
  Transmission Date: 20110219
  Serious: No
  Sender: FDA-Public Use
  Company Number: PFIZER INC-2007009868

PATIENT
  Sex: Female

DRUGS (1)
  1. PREGABALIN [Suspect]

REACTIONS (5)
  - ARTHROPATHY [None]
  - DRUG INTOLERANCE [None]
  - FATIGUE [None]
  - JOINT SWELLING [None]
  - OEDEMA PERIPHERAL [None]
